FAERS Safety Report 8820350 (Version 1)
Quarter: 2012Q4

REPORT INFORMATION
  Report Type: Report from Study
  Country: JP (occurrence: JP)
  Receive Date: 20121002
  Receipt Date: 20121002
  Transmission Date: 20130627
  Serious: Yes (Other)
  Sender: FDA-Public Use
  Company Number: JP-009507513-2012SP029621

PATIENT
  Age: 61 Year
  Sex: Male
  Weight: 82 kg

DRUGS (20)
  1. PEGINTRON [Suspect]
     Indication: HEPATITIS C
     Dosage: 1.0 ?g/kg, QW
     Route: 058
     Dates: start: 20120316, end: 20120720
  2. PEGINTRON [Suspect]
     Dosage: 1 Microgram per kilogram, UNK
     Route: 058
     Dates: start: 20120801, end: 20120801
  3. PEGINTRON [Suspect]
     Dosage: 1 Microgram per kilogram, UNK
     Route: 058
     Dates: start: 20120815, end: 20120912
  4. REBETOL [Suspect]
     Indication: HEPATITIS C
     Dosage: 600 mg, QD
     Route: 048
     Dates: start: 20120316
  5. REBETOL [Suspect]
     Dosage: 200 mg,qd
     Route: 048
     Dates: start: 20120502, end: 201207
  6. REBETOL [Suspect]
     Dosage: 200 mg,qd
     Route: 048
     Dates: start: 20120801, end: 20120806
  7. REBETOL [Suspect]
     Dosage: 400 mg, qd
     Route: 048
     Dates: start: 20120815, end: 20120828
  8. REBETOL [Suspect]
     Dosage: 200 mg,qd
     Route: 048
     Dates: start: 20120829, end: 20120912
  9. TELAVIC [Concomitant]
     Indication: HEPATITIS C
     Dosage: 1500 mg, QD
     Route: 048
     Dates: start: 20120316, end: 20120531
  10. TELAVIC [Concomitant]
     Dosage: 1000 mg,qd
     Route: 048
     Dates: start: 20120601, end: 20120607
  11. URALYT U [Concomitant]
     Indication: GOUT
     Dosage: FORMULATION: POR
     Route: 048
  12. URALYT U [Concomitant]
     Indication: HYPERURICAEMIA
     Dosage: 3 g, UNK
     Route: 048
  13. URINORM [Concomitant]
     Indication: GOUT
     Dosage: FORMULATION: POR
     Route: 048
  14. BLOPRESS [Concomitant]
     Indication: HYPERTENSION
     Dosage: FORMULATION: POR
     Route: 048
  15. BLOPRESS [Concomitant]
     Dosage: 4 UNK, UNK
  16. EPLERENONE [Concomitant]
     Indication: HYPERTENSION
     Dosage: FORMULATION: POR
     Route: 048
  17. PARIET [Concomitant]
     Indication: GASTROOESOPHAGEAL REFLUX DISEASE
     Dosage: FORMULATION: POR
     Route: 048
  18. LIVALO [Concomitant]
     Indication: HYPERLIPIDAEMIA
     Dosage: FORMULATION: POR
     Route: 048
  19. EPADEL [Concomitant]
     Indication: HYPERLIPIDAEMIA
     Dosage: FORMULATION: POR
     Route: 048
  20. SODIUM FERROUS CITRATE [Concomitant]
     Indication: IRON DEFICIENCY ANAEMIA
     Dosage: FORMULATION: POR
     Route: 048

REACTIONS (3)
  - Anaemia [Not Recovered/Not Resolved]
  - Anaemia [Not Recovered/Not Resolved]
  - Anaemia [Not Recovered/Not Resolved]
